FAERS Safety Report 4363419-3 (Version None)
Quarter: 2004Q2

REPORT INFORMATION
  Report Type: 
  Country: None (occurrence: None)
  Receive Date: 20040524
  Receipt Date: 20040304
  Transmission Date: 20050107
  Serious: Yes (Disabling)
  Sender: FDA-Public Use
  Company Number: JP-GLAXOSMITHKLINE-B0325848A

PATIENT
  Age: 72 Year
  Sex: Female
  Weight: 49 kg

DRUGS (10)
  1. VALTREX [Suspect]
     Indication: HERPES ZOSTER
     Dosage: 1000MG PER DAY
     Route: 048
     Dates: start: 20040227, end: 20040301
  2. DIALYSIS [Concomitant]
     Dates: start: 20001027
  3. FUROSEMIDE [Concomitant]
     Dosage: 160MG PER DAY
     Route: 048
     Dates: start: 20000901
  4. LAFUTIDINE [Concomitant]
     Indication: GASTRITIS
     Dosage: 10MG PER DAY
     Route: 048
  5. SENNOSIDE [Concomitant]
     Indication: CONSTIPATION
     Dosage: 3U PER DAY
     Route: 048
     Dates: start: 20000901
  6. ETHYL LOFLAZEPATE [Concomitant]
     Indication: ANXIETY DISORDER
     Dosage: 2MG PER DAY
     Route: 048
     Dates: start: 20020401
  7. PRECIPITATED CALCIUM CARBONATE [Concomitant]
     Indication: BLOOD PHOSPHORUS INCREASED
     Dosage: 4.5G PER DAY
     Route: 048
     Dates: start: 20000901
  8. MECOBALAMIN [Concomitant]
     Indication: HERPES ZOSTER
     Dosage: 1500UG PER DAY
     Route: 048
     Dates: start: 20040227
  9. LOXOPROFEN SODIUM [Concomitant]
     Indication: HERPES ZOSTER
     Route: 048
     Dates: start: 20040227
  10. REBAMIPIDE [Concomitant]
     Indication: HERPES ZOSTER
     Route: 048
     Dates: start: 20040227

REACTIONS (3)
  - DYSARTHRIA [None]
  - GAIT DISTURBANCE [None]
  - NERVOUS SYSTEM DISORDER [None]
